FAERS Safety Report 20646752 (Version 1)
Quarter: 2022Q1

REPORT INFORMATION
  Report Type: Spontaneous
  Country: NL (occurrence: NL)
  Receive Date: 20220329
  Receipt Date: 20220329
  Transmission Date: 20220423
  Serious: Yes (Other)
  Sender: FDA-Public Use
  Company Number: NL-ALKEM LABORATORIES LIMITED-NL-ALKEM-2022-02367

PATIENT
  Age: 83 Year
  Sex: Female

DRUGS (1)
  1. PREGABALIN [Suspect]
     Active Substance: PREGABALIN
     Indication: Product used for unknown indication
     Dosage: 210 MG KG-1 (FIRST USE)
     Route: 065

REACTIONS (6)
  - Loss of consciousness [Unknown]
  - Confusional state [Unknown]
  - Somnolence [Unknown]
  - Headache [Unknown]
  - Overdose [Unknown]
  - Intentional product misuse [Unknown]
